FAERS Safety Report 4808651-7 (Version None)
Quarter: 2005Q4

REPORT INFORMATION
  Report Type: 
  Country: None (occurrence: None)
  Receive Date: 20051025
  Receipt Date: 20051003
  Transmission Date: 20060501
  Serious: Yes (Death)
  Sender: FDA-Public Use
  Company Number: US-GILEAD-2005-0008761

PATIENT
  Age: 31 Year
  Sex: Male

DRUGS (2)
  1. VIREAD [Suspect]
     Indication: HIV INFECTION
     Route: 048
  2. LAMIVUDINE [Concomitant]
     Indication: HIV INFECTION
     Route: 048
     Dates: start: 20030325, end: 20030519

REACTIONS (3)
  - HEPATIC FAILURE [None]
  - RASH [None]
  - RASH MACULO-PAPULAR [None]
